FAERS Safety Report 9944133 (Version 2)
Quarter: 2014Q1

REPORT INFORMATION
  Report Type: Report from Study
  Country: US (occurrence: US)
  Receive Date: 20140303
  Receipt Date: 20140303
  Transmission Date: 20141002
  Serious: Yes (Hospitalization)
  Sender: FDA-Public Use
  Company Number: US-ABBVIE-13P-163-1049945-00

PATIENT
  Age: 42 Year
  Sex: Female
  Weight: 60.84 kg

DRUGS (6)
  1. HUMIRA [Suspect]
     Indication: RHEUMATOID ARTHRITIS
     Route: 058
     Dates: start: 2005
  2. UNKNOWN IV FLUIDS [Suspect]
     Indication: GALLBLADDER OPERATION
     Route: 042
     Dates: start: 20130208, end: 20130210
  3. UNKNOWN PAIN MEDICATIONS [Suspect]
     Indication: GALLBLADDER OPERATION
     Route: 040
     Dates: start: 20130208, end: 20130210
  4. PLAQUENIL [Concomitant]
     Indication: RHEUMATOID ARTHRITIS
  5. UNKNOWN MEDICATION [Concomitant]
     Indication: CONTRACEPTION
  6. ZYRTEC [Concomitant]
     Indication: SEASONAL ALLERGY

REACTIONS (9)
  - Cholelithiasis [Recovered/Resolved]
  - Back pain [Recovered/Resolved]
  - Abdominal pain [Recovered/Resolved]
  - Nausea [Recovered/Resolved]
  - Vomiting [Recovered/Resolved]
  - Neuralgia [Recovered/Resolved]
  - Anxiety [Recovered/Resolved]
  - Dyspnoea [Recovered/Resolved]
  - Dizziness [Recovered/Resolved]
